FAERS Safety Report 5024358-8 (Version None)
Quarter: 2006Q2

REPORT INFORMATION
  Report Type: 
  Country: None (occurrence: None)
  Receive Date: 20060609
  Receipt Date: 20060609
  Transmission Date: 20061013
  Serious: Yes (Hospitalization)
  Sender: FDA-Public Use
  Company Number: None

PATIENT
  Age: 60 Year
  Sex: Female
  Weight: 117.9352 kg

DRUGS (1)
  1. XELODA [Suspect]
     Indication: LYMPHOMA
     Dosage: 2000 MG BID OPHTHALMIC
     Route: 047
     Dates: start: 20060511, end: 20060528

REACTIONS (5)
  - DEHYDRATION [None]
  - GASTROINTESTINAL EROSION [None]
  - LETHARGY [None]
  - LOSS OF CONSCIOUSNESS [None]
  - RENAL FAILURE [None]
